FAERS Safety Report 11173997 (Version 3)
Quarter: 2015Q3

REPORT INFORMATION
  Report Type: Spontaneous
  Country: JP (occurrence: JP)
  Receive Date: 20150609
  Receipt Date: 20150706
  Transmission Date: 20151125
  Serious: Yes (Hospitalization)
  Sender: FDA-Public Use
  Company Number: JP-PFIZER INC-2015191789

PATIENT
  Age: 86 Year
  Sex: Female

DRUGS (4)
  1. GLIBENCLAMIDE [Interacting]
     Active Substance: GLYBURIDE
     Indication: TYPE 2 DIABETES MELLITUS
     Dosage: 2.5 MG, DAILY
     Route: 065
  2. LINAGLIPTIN [Concomitant]
     Active Substance: LINAGLIPTIN
     Indication: TYPE 2 DIABETES MELLITUS
     Dosage: UNK
  3. MIGLITOL. [Suspect]
     Active Substance: MIGLITOL
     Indication: TYPE 2 DIABETES MELLITUS
     Dosage: 150 MG, DAILY
     Route: 048
  4. INSULIN [Concomitant]
     Active Substance: INSULIN NOS
     Dosage: UNK

REACTIONS (5)
  - Hypoglycaemia [Recovering/Resolving]
  - Hypoglycaemic encephalopathy [Unknown]
  - Altered state of consciousness [Not Recovered/Not Resolved]
  - Drug interaction [Unknown]
  - Wrong drug administered [Unknown]
